FAERS Safety Report 7500512-8 (Version None)
Quarter: 2011Q2

REPORT INFORMATION
  Report Type: 
  Country: None (occurrence: None)
  Receive Date: 20110524
  Receipt Date: 20110517
  Transmission Date: 20111010
  Serious: Yes (Other)
  Sender: FDA-Public Use
  Company Number: US-PFIZER INC-US-WYE-H12623709

PATIENT
  Sex: Female
  Weight: 76.19 kg

DRUGS (2)
  1. PREMARIN [Suspect]
     Indication: HORMONE REPLACEMENT THERAPY
     Dosage: 0.625 MG, UNK
     Dates: end: 20060101
  2. PREMARIN [Suspect]
     Dosage: 0.3 MG, UNK
     Dates: start: 20060101, end: 20080101

REACTIONS (1)
  - BREAST CANCER FEMALE [None]
